FAERS Safety Report 4642406-1 (Version None)
Quarter: 2005Q2

REPORT INFORMATION
  Report Type: 
  Country: None (occurrence: None)
  Receive Date: 20050422
  Receipt Date: 20050330
  Transmission Date: 20051028
  Serious: Yes (Hospitalization)
  Sender: FDA-Public Use
  Company Number: FR-BRISTOL-MYERS SQUIBB COMPANY-12918066

PATIENT
  Age: 12 Year
  Sex: Female
  Weight: 33 kg

DRUGS (5)
  1. AMIKLIN POWDER [Suspect]
     Route: 042
     Dates: start: 20050204, end: 20050210
  2. RIFADIN [Suspect]
     Route: 042
     Dates: start: 20050126, end: 20050210
  3. TRIFLUCAN [Suspect]
     Indication: INFECTION
     Route: 042
     Dates: start: 20050126, end: 20050217
  4. VANCOCIN HCL [Suspect]
     Indication: INFECTION
     Route: 042
     Dates: start: 20050126, end: 20050217
  5. TAZOCILLINE [Suspect]
     Route: 042
     Dates: start: 20050204, end: 20050210

REACTIONS (15)
  - ALANINE AMINOTRANSFERASE INCREASED [None]
  - BLOOD ALKALINE PHOSPHATASE INCREASED [None]
  - CHEILITIS [None]
  - CYTOLYTIC HEPATITIS [None]
  - EOSINOPHILIA [None]
  - EPIDERMAL NECROSIS [None]
  - EXANTHEM [None]
  - FACE OEDEMA [None]
  - LEUKOPENIA [None]
  - LYMPHADENOPATHY [None]
  - LYMPHOCYTIC DERMATITIS [None]
  - NEUTROPENIA [None]
  - OEDEMA PERIPHERAL [None]
  - RASH VESICULAR [None]
  - URTICARIA [None]
